FAERS Safety Report 13625650 (Version 1)
Quarter: 2017Q2

REPORT INFORMATION
  Report Type: Spontaneous
  Country: US (occurrence: US)
  Receive Date: 20170607
  Receipt Date: 20170607
  Transmission Date: 20170830
  Serious: No
  Sender: FDA-Public Use
  Company Number: US-JNJFOC-20161009939

PATIENT
  Sex: Male

DRUGS (1)
  1. RISPERDAL [Suspect]
     Active Substance: RISPERIDONE
     Indication: PRODUCT USED FOR UNKNOWN INDICATION
     Dosage: 1MG, 1.5MG, 2MG AND 3MG
     Route: 048
     Dates: start: 20001206, end: 20010606

REACTIONS (2)
  - Emotional disorder [Unknown]
  - Gynaecomastia [Unknown]
